FAERS Safety Report 6285077-3 (Version None)
Quarter: 2009Q3

REPORT INFORMATION
  Report Type: 
  Country: None (occurrence: None)
  Receive Date: 20090727
  Receipt Date: 20090718
  Transmission Date: 20100115
  Serious: Yes (Death)
  Sender: FDA-Public Use
  Company Number: IE-BRISTOL-MYERS SQUIBB COMPANY-14708762

PATIENT
  Sex: Female

DRUGS (1)
  1. VELOSEF [Suspect]
     Dosage: 1 DF = 250MG/5 ML SYRUP. 3-4 TIMES A YEAR
     Route: 048

REACTIONS (1)
  - DEATH [None]
